FAERS Safety Report 7971237 (Version 4)
Quarter: 2022Q4

REPORT INFORMATION
  Report Type: Spontaneous
  Country: US (occurrence: None)
  Receive Date: 20110602
  Receipt Date: 20221108
  Transmission Date: 20230112
  Serious: Yes (Hospitalization, Other)
  Sender: FDA-Public Use
  Company Number: US-ROCHE-778898

PATIENT
  Age: 60 Year
  Sex: Female

DRUGS (9)
  1. BONIVA [Suspect]
     Active Substance: IBANDRONATE SODIUM
     Indication: Osteoporosis
     Route: 048
     Dates: start: 2008, end: 2009
  2. FOSAMAX [Suspect]
     Active Substance: ALENDRONATE SODIUM
     Indication: Osteoporosis
     Route: 065
     Dates: start: 1999, end: 2008
  3. LAMICTAL [Concomitant]
     Active Substance: LAMOTRIGINE
     Route: 048
  4. WELLBUTRIN [Concomitant]
     Active Substance: BUPROPION HYDROCHLORIDE
     Route: 048
  5. LUNESTA [Concomitant]
     Active Substance: ESZOPICLONE
     Route: 048
  6. PREVACID [Concomitant]
     Active Substance: LANSOPRAZOLE
     Route: 048
  7. SINGULAIR [Concomitant]
     Active Substance: MONTELUKAST SODIUM
  8. ALBUTEROL [Concomitant]
     Active Substance: ALBUTEROL
  9. ADVAIR HFA [Concomitant]
     Active Substance: FLUTICASONE PROPIONATE\SALMETEROL XINAFOATE
     Dosage: 250 MCG 2 PUFF DAILY

REACTIONS (16)
  - Femur fracture [Unknown]
  - Osteogenesis imperfecta [Unknown]
  - Stress fracture [Unknown]
  - Low turnover osteopathy [Unknown]
  - Emotional distress [Unknown]
  - Anxiety [Unknown]
  - Electrocardiogram abnormal [Unknown]
  - Pulmonary hypertension [Unknown]
  - Asthma [Unknown]
  - Pleuritic pain [Unknown]
  - Osteoarthritis [Unknown]
  - Limb injury [Unknown]
  - Arthralgia [Unknown]
  - Aphasia [Unknown]
  - Amnesia [Unknown]
  - Cough [Unknown]

NARRATIVE: CASE EVENT DATE: 20080603
